FAERS Safety Report 16398940 (Version 1)
Quarter: 2019Q2

REPORT INFORMATION
  Report Type: Spontaneous
  Country: US (occurrence: US)
  Receive Date: 20190606
  Receipt Date: 20190606
  Transmission Date: 20190711
  Serious: Yes (Hospitalization, Other)
  Sender: FDA-Public Use
  Company Number: US-MYLANLABS-2019M1053378

PATIENT
  Age: 54 Year
  Sex: Male

DRUGS (1)
  1. TACROLIMUS. [Suspect]
     Active Substance: TACROLIMUS
     Indication: IMMUNOSUPPRESSANT DRUG THERAPY
     Dosage: 6 MILLIGRAM
     Route: 065
     Dates: start: 201405, end: 20140923

REACTIONS (2)
  - Optic neuropathy [Recovered/Resolved]
  - Posterior reversible encephalopathy syndrome [Recovered/Resolved]
